FAERS Safety Report 10467176 (Version 4)
Quarter: 2014Q4

REPORT INFORMATION
  Report Type: Spontaneous
  Country: JP (occurrence: JP)
  Receive Date: 20140922
  Receipt Date: 20141030
  Transmission Date: 20150528
  Serious: Yes (Death)
  Sender: FDA-Public Use
  Company Number: JP-ASTELLAS-2014JP020963AA

PATIENT
  Age: 72 Year
  Sex: Male
  Weight: 65 kg

DRUGS (6)
  1. XTANDI [Suspect]
     Active Substance: ENZALUTAMIDE
     Indication: HORMONE-REFRACTORY PROSTATE CANCER
     Route: 048
     Dates: start: 20140605, end: 20140905
  2. PLATIBIT [Concomitant]
     Indication: HYPOCALCAEMIA
     Dosage: 0.5 ?G, ONCE DAILY
     Route: 048
     Dates: start: 20140403, end: 20140905
  3. MAGMITT [Concomitant]
     Active Substance: MAGNESIUM OXIDE
     Indication: CONSTIPATION
     Route: 048
     Dates: start: 20140116, end: 20140905
  4. CALCIUM LACTATE [Concomitant]
     Active Substance: CALCIUM LACTATE
     Indication: HYPOCALCAEMIA
     Route: 048
     Dates: start: 20140403, end: 20140905
  5. RINDERON                           /00008501/ [Concomitant]
     Indication: CACHEXIA
     Route: 048
     Dates: start: 20140306, end: 20140905
  6. LANSOPRAZOLE. [Concomitant]
     Active Substance: LANSOPRAZOLE
     Indication: ABDOMINAL DISCOMFORT
     Route: 048
     Dates: start: 20140306, end: 20140905

REACTIONS (1)
  - Acute myocardial infarction [Fatal]

NARRATIVE: CASE EVENT DATE: 20140905
